FAERS Safety Report 13402058 (Version 1)
Quarter: 2017Q2

REPORT INFORMATION
  Report Type: Spontaneous
  Country: CA (occurrence: CA)
  Receive Date: 20170404
  Receipt Date: 20170404
  Transmission Date: 20170830
  Serious: Yes (Other)
  Sender: FDA-Public Use
  Company Number: CA-GE HEALTHCARE LIFE SCIENCES-2017CSU000652

PATIENT

DRUGS (1)
  1. OMNISCAN [Suspect]
     Active Substance: GADODIAMIDE
     Indication: PRODUCT USED FOR UNKNOWN INDICATION
     Dosage: 16 ML, SINGLE
     Route: 042
     Dates: start: 20170328, end: 20170328

REACTIONS (2)
  - Swollen tongue [Unknown]
  - Urticaria [Unknown]

NARRATIVE: CASE EVENT DATE: 20170328
